FAERS Safety Report 11247819 (Version 1)
Quarter: 2015Q3

REPORT INFORMATION
  Report Type: Spontaneous
  Country: US (occurrence: US)
  Receive Date: 20150708
  Receipt Date: 20150708
  Transmission Date: 20151125
  Serious: No
  Sender: FDA-Public Use
  Company Number: US-B.I. PHARMACEUTICALS,INC./RIDGEFIELD-2015-BI-34474BP

PATIENT
  Age: 67 Year
  Sex: Female
  Weight: 75 kg

DRUGS (7)
  1. METHOTREXATE [Concomitant]
     Active Substance: METHOTREXATE
     Indication: RHEUMATOID ARTHRITIS
     Dosage: 0.3571 MG
     Route: 048
     Dates: start: 201504
  2. PREDNISONE. [Concomitant]
     Active Substance: PREDNISONE
     Indication: PSORIATIC ARTHROPATHY
     Dosage: 8 MG
     Route: 048
     Dates: start: 201504
  3. SULFAZINE [Concomitant]
     Active Substance: SULFASALAZINE
     Indication: COLITIS
     Dosage: 2000 MG
     Route: 048
     Dates: start: 2014
  4. BIOTIN [Concomitant]
     Active Substance: BIOTIN
     Indication: RHEUMATOID ARTHRITIS
     Dosage: 1000 MCG
     Route: 048
     Dates: start: 201504
  5. LOSARTAN WITH POTASSIUM [Concomitant]
     Indication: HYPERTENSION
     Dosage: 100 MG
     Route: 048
     Dates: start: 2013
  6. SPIRIVA [Suspect]
     Active Substance: TIOTROPIUM BROMIDE MONOHYDRATE
     Indication: EMPHYSEMA
     Dosage: 18 MCG
     Route: 055
     Dates: start: 20150625
  7. FOLIC ACID. [Concomitant]
     Active Substance: FOLIC ACID
     Indication: RHEUMATOID ARTHRITIS
     Dosage: 1 MG
     Route: 048
     Dates: start: 201504

REACTIONS (1)
  - Vision blurred [Not Recovered/Not Resolved]

NARRATIVE: CASE EVENT DATE: 20150625
